FAERS Safety Report 9703249 (Version 4)
Quarter: 2015Q3

REPORT INFORMATION
  Report Type: Report from Study
  Country: JP (occurrence: JP)
  Receive Date: 20131122
  Receipt Date: 20150714
  Transmission Date: 20151125
  Serious: No
  Sender: FDA-Public Use
  Company Number: JP-JNJFOC-20131110581

PATIENT
  Age: 85 Year
  Sex: Female
  Weight: 36 kg

DRUGS (3)
  1. XARELTO [Suspect]
     Active Substance: RIVAROXABAN
     Indication: THROMBOSIS PROPHYLAXIS
     Route: 048
     Dates: start: 20130919
  2. XARELTO [Suspect]
     Active Substance: RIVAROXABAN
     Indication: CEREBROVASCULAR ACCIDENT PROPHYLAXIS
     Route: 048
     Dates: start: 20130919
  3. XARELTO [Suspect]
     Active Substance: RIVAROXABAN
     Indication: ATRIAL FIBRILLATION
     Route: 048
     Dates: start: 20130919

REACTIONS (1)
  - Iron deficiency anaemia [Recovered/Resolved]

NARRATIVE: CASE EVENT DATE: 20131003
